FAERS Safety Report 9681697 (Version 1)
Quarter: 2013Q4

REPORT INFORMATION
  Report Type: Spontaneous
  Country: JP (occurrence: JP)
  Receive Date: 20131111
  Receipt Date: 20131111
  Transmission Date: 20140711
  Serious: Yes (Other)
  Sender: FDA-Public Use
  Company Number: JP-OTSUKA-JP-2013-15057

PATIENT
  Age: 78 Year
  Sex: Female

DRUGS (4)
  1. PLETAAL [Suspect]
     Dosage: 200 MG MILLIGRAM(S), DAILY DOSE
     Route: 048
  2. NORVASC [Suspect]
     Dosage: 5 MG MILLIGRAM(S), DAILY DOSE
     Route: 048
  3. BLOPRESS [Suspect]
     Route: 048
  4. RIZE [Suspect]
     Dosage: 5 MG MILLIGRAM(S), DAILY DOSE
     Route: 048

REACTIONS (1)
  - Blood creatine phosphokinase increased [Unknown]
